FAERS Safety Report 5964642-4 (Version None)
Quarter: 2008Q4

REPORT INFORMATION
  Report Type: 
  Country: None (occurrence: None)
  Receive Date: 20081125
  Receipt Date: 20081113
  Transmission Date: 20090506
  Serious: Yes (Hospitalization)
  Sender: FDA-Public Use
  Company Number: AT-BAYER-200828287GPV

PATIENT
  Age: 25 Year
  Sex: Female
  Weight: 70 kg

DRUGS (2)
  1. MIRENA [Suspect]
     Indication: CONTRACEPTION
     Route: 015
     Dates: start: 20080205
  2. CHLORPROTHIXENE [Concomitant]
     Indication: SLEEP DISORDER

REACTIONS (4)
  - AGGRESSION [None]
  - DEPRESSED MOOD [None]
  - PERSONALITY DISORDER [None]
  - SUICIDAL IDEATION [None]
